FAERS Safety Report 25165911 (Version 1)
Quarter: 2025Q2

REPORT INFORMATION
  Report Type: Spontaneous
  Country: CN (occurrence: CN)
  Receive Date: 20250407
  Receipt Date: 20250407
  Transmission Date: 20250716
  Serious: Yes (Other)
  Sender: BAXTER
  Company Number: None

PATIENT
  Age: 42 Year
  Sex: Female
  Weight: 55 kg

DRUGS (10)
  1. CYCLOPHOSPHAMIDE [Suspect]
     Active Substance: CYCLOPHOSPHAMIDE
     Indication: Chemotherapy
     Dosage: 900 MG, QD, POWDER FOR INJECTION
     Route: 041
     Dates: start: 20250319, end: 20250319
  2. CYCLOPHOSPHAMIDE [Suspect]
     Active Substance: CYCLOPHOSPHAMIDE
     Indication: Neoplasm
  3. CYCLOPHOSPHAMIDE [Suspect]
     Active Substance: CYCLOPHOSPHAMIDE
     Indication: Breast cancer
  4. CYCLOPHOSPHAMIDE [Suspect]
     Active Substance: CYCLOPHOSPHAMIDE
     Indication: Adjuvant therapy
  5. SODIUM CHLORIDE [Suspect]
     Active Substance: SODIUM CHLORIDE
     Route: 065
     Dates: start: 20250319
  6. DEXTROSE [Suspect]
     Active Substance: DEXTROSE MONOHYDRATE
     Route: 065
     Dates: start: 20250319
  7. PIRARUBICIN HYDROCHLORIDE [Suspect]
     Active Substance: PIRARUBICIN HYDROCHLORIDE
     Indication: Chemotherapy
     Dosage: 70 MG, QD, POWDER FOR INJECTION
     Route: 041
     Dates: start: 20250319, end: 20250319
  8. PIRARUBICIN HYDROCHLORIDE [Suspect]
     Active Substance: PIRARUBICIN HYDROCHLORIDE
     Indication: Neoplasm
  9. PIRARUBICIN HYDROCHLORIDE [Suspect]
     Active Substance: PIRARUBICIN HYDROCHLORIDE
     Indication: Breast cancer
  10. PIRARUBICIN HYDROCHLORIDE [Suspect]
     Active Substance: PIRARUBICIN HYDROCHLORIDE
     Indication: Adjuvant therapy

REACTIONS (1)
  - Myelosuppression [Recovering/Resolving]

NARRATIVE: CASE EVENT DATE: 20250326
